FAERS Safety Report 12137216 (Version 1)
Quarter: 2016Q1

REPORT INFORMATION
  Report Type: Spontaneous
  Country: US (occurrence: US)
  Receive Date: 20160302
  Receipt Date: 20160302
  Transmission Date: 20160526
  Serious: No
  Sender: FDA-Public Use
  Company Number: US-INSYS THERAPEUTICS, INC-INS201508-000345

PATIENT
  Age: 66 Year
  Sex: Female

DRUGS (8)
  1. SUBSYS [Suspect]
     Active Substance: FENTANYL
     Indication: RHEUMATOID ARTHRITIS
  2. SUBSYS [Suspect]
     Active Substance: FENTANYL
     Indication: FIBROMYALGIA
  3. SUBSYS [Suspect]
     Active Substance: FENTANYL
     Indication: OSTEITIS DEFORMANS
  4. BOTOX INJECTION [Concomitant]
     Indication: HEADACHE
  5. SUBSYS [Suspect]
     Active Substance: FENTANYL
     Indication: MULTIPLE SCLEROSIS
  6. CALCITONIN [Concomitant]
     Active Substance: CALCITONIN
     Indication: BONE CANCER
  7. SUBSYS [Suspect]
     Active Substance: FENTANYL
     Indication: INTERVERTEBRAL DISC DEGENERATION
  8. FENTANYL TRANSDERMAL SYSTEM [Concomitant]
     Active Substance: FENTANYL

REACTIONS (2)
  - Dysphonia [Not Recovered/Not Resolved]
  - Product quality issue [Unknown]
